FAERS Safety Report 8609526-8 (Version None)
Quarter: 2012Q3

REPORT INFORMATION
  Report Type: 
  Country: None (occurrence: None)
  Receive Date: 20120821
  Receipt Date: 20120815
  Transmission Date: 20120928
  Serious: Yes (Hospitalization, Other)
  Sender: FDA-Public Use
  Company Number: US-PFIZER INC-2012109034

PATIENT
  Sex: Male

DRUGS (1)
  1. NEURONTIN [Suspect]
     Indication: NEUROPATHY PERIPHERAL
     Dosage: 200 MG, DAILY

REACTIONS (5)
  - RENAL FAILURE CHRONIC [None]
  - DRUG INEFFECTIVE [None]
  - MULTIPLE MYELOMA [None]
  - RENAL FAILURE ACUTE [None]
  - ANKLE FRACTURE [None]
